FAERS Safety Report 7622074-7 (Version None)
Quarter: 2011Q3

REPORT INFORMATION
  Report Type: 
  Country: None (occurrence: None)
  Receive Date: 20110720
  Receipt Date: 20101123
  Transmission Date: 20111222
  Serious: Yes (Hospitalization, Other)
  Sender: FDA-Public Use
  Company Number: US-BAYER-201038101NA

PATIENT
  Age: 23 Year
  Sex: Female
  Weight: 100 kg

DRUGS (25)
  1. YAZ [Suspect]
     Indication: PREMENSTRUAL SYNDROME
  2. CEPHALEXIN [Concomitant]
     Dosage: 500 MG, UNK
     Route: 048
     Dates: start: 20080327
  3. YAZ [Suspect]
     Indication: POLYCYSTIC OVARIES
     Dosage: UNK
     Route: 048
     Dates: start: 20020101, end: 20070101
  4. ACETAMINOPHEN W/ PROPOXYPHENE HCL [Concomitant]
     Dosage: UNK
     Route: 048
     Dates: start: 20040730
  5. ACETAMINOPHEN W/ PROPOXYPHENE HCL [Concomitant]
     Dosage: UNK
     Route: 048
     Dates: start: 20050802
  6. SPIRONOLACTONE [Concomitant]
     Dosage: 25 MG, UNK
     Route: 048
     Dates: start: 20041020
  7. YASMIN [Suspect]
     Indication: PREMENSTRUAL SYNDROME
  8. DROSPIRENONE AND ETHINYL ESTRADIOL [Suspect]
     Indication: PREMENSTRUAL SYNDROME
  9. CEPHALEXIN [Concomitant]
     Dosage: 500 MG, UNK
     Route: 048
     Dates: start: 20070110
  10. ACETAMINOPHEN W/ PROPOXYPHENE HCL [Concomitant]
     Dosage: UNK
     Route: 048
     Dates: start: 20031125
  11. YASMIN [Suspect]
     Indication: POLYCYSTIC OVARIES
     Dosage: UNK
     Dates: start: 20020101, end: 20070101
  12. CYCLOBENAZPRINE [Concomitant]
     Dosage: 10 MG, UNK
     Route: 048
     Dates: start: 20070811
  13. DROSPIRENONE AND ETHINYL ESTRADIOL [Suspect]
     Indication: POLYCYSTIC OVARIES
     Dosage: UNK
     Dates: start: 20020101, end: 20070101
  14. ACETAMINOPHEN W/ PROPOXYPHENE HCL [Concomitant]
     Dosage: UNK
     Route: 048
     Dates: start: 20050506
  15. CYCLOBENAZPRINE [Concomitant]
     Dosage: 10 MG, UNK
     Route: 048
     Dates: start: 20040730
  16. CYCLOBENAZPRINE [Concomitant]
     Dosage: 10 MG, UNK
     Route: 048
     Dates: start: 20050506
  17. CYCLOBENAZPRINE [Concomitant]
     Dosage: 10 MG, UNK
     Route: 048
     Dates: start: 20050802
  18. NEXIUM [Concomitant]
  19. CEPHALEXIN [Concomitant]
     Dosage: 500 MG, UNK
     Route: 048
     Dates: start: 20071029
  20. IBUPROFEN (ADVIL) [Concomitant]
     Indication: MIGRAINE
  21. PHENTERMINE [Concomitant]
     Dosage: 30 MG, UNK
     Route: 048
     Dates: start: 20041020
  22. TOURO LA-LD [Concomitant]
     Dosage: UNK
     Dates: start: 20041201
  23. EXCEDRIN [ACETYLSALICYLIC ACID,CAFFEINE,PARACETAMOL] [Concomitant]
     Indication: MIGRAINE
  24. ACETAMINOPHEN W/ PROPOXYPHENE HCL [Concomitant]
     Dosage: UNK
     Route: 048
     Dates: start: 20040710
  25. ACETAMINOPHEN W/ PROPOXYPHENE HCL [Concomitant]
     Dosage: UNK
     Route: 048
     Dates: start: 20060208

REACTIONS (2)
  - CARDIAC DISORDER [None]
  - CHOLECYSTITIS CHRONIC [None]
